FAERS Safety Report 10457308 (Version 4)
Quarter: 2015Q1

REPORT INFORMATION
  Report Type: Spontaneous
  Country: US (occurrence: US)
  Receive Date: 20140916
  Receipt Date: 20150128
  Transmission Date: 20150720
  Serious: No
  Sender: FDA-Public Use
  Company Number: US-TEVA-508349USA

PATIENT
  Age: 48 Year
  Sex: Female
  Weight: 77.18 kg

DRUGS (2)
  1. IBUPROFEN. [Concomitant]
     Active Substance: IBUPROFEN
  2. NUVIGIL [Suspect]
     Active Substance: ARMODAFINIL
     Indication: FATIGUE
     Route: 048
     Dates: end: 20140909

REACTIONS (9)
  - Depression [Not Recovered/Not Resolved]
  - Off label use [Unknown]
  - Adverse event [Not Recovered/Not Resolved]
  - Product use issue [Unknown]
  - Somnolence [Unknown]
  - Fatigue [Not Recovered/Not Resolved]
  - Muscle spasticity [Unknown]
  - Drug effect decreased [Unknown]
  - Drug ineffective for unapproved indication [Unknown]

NARRATIVE: CASE EVENT DATE: 2014
